FAERS Safety Report 16275524 (Version 1)
Quarter: 2019Q2

REPORT INFORMATION
  Report Type: Spontaneous
  Country: US (occurrence: US)
  Receive Date: 20190506
  Receipt Date: 20190506
  Transmission Date: 20190711
  Serious: No
  Sender: FDA-Public Use
  Company Number: US-BAUSCH-BL-2019-011651

PATIENT
  Sex: Female
  Weight: 54.48 kg

DRUGS (4)
  1. TIMOPTIC [Suspect]
     Active Substance: TIMOLOL MALEATE
     Indication: PIGMENTARY GLAUCOMA
     Dosage: ONE DROP IN EACH EYE DAILY IN THE MORNING.
     Route: 047
     Dates: start: 201806
  2. TIMOLOL MALEATE OPHTHALMIC SOLUTION USP 0.5% [Suspect]
     Active Substance: TIMOLOL MALEATE
     Indication: PIGMENTARY GLAUCOMA
     Dosage: STARTED AT THE END OF 2017 OR EARLY 2018, ONE DROP IN EACH EYE DAILY IN THE MORNING.
     Route: 047
  3. TIMOLOL MALEATE OPHTHALMIC SOLUTION USP 0.5% [Suspect]
     Active Substance: TIMOLOL MALEATE
     Indication: PRODUCT USE IN UNAPPROVED INDICATION
  4. TIMOPTIC [Suspect]
     Active Substance: TIMOLOL MALEATE
     Indication: PRODUCT USE IN UNAPPROVED INDICATION

REACTIONS (6)
  - Skin wrinkling [Unknown]
  - Skin discolouration [Recovering/Resolving]
  - Product use in unapproved indication [Unknown]
  - Eye irritation [Unknown]
  - Skin irritation [Unknown]
  - Dry skin [Unknown]
